FAERS Safety Report 19957517 (Version 2)
Quarter: 2021Q4

REPORT INFORMATION
  Report Type: Report from Study
  Country: DE (occurrence: DE)
  Receive Date: 20211015
  Receipt Date: 20211103
  Transmission Date: 20220303
  Serious: Yes (Hospitalization)
  Sender: FDA-Public Use
  Company Number: DE-CELLTRION INC.-2021DE013999

PATIENT

DRUGS (4)
  1. TRUXIMA [Suspect]
     Active Substance: RITUXIMAB-ABBS
     Indication: Marginal zone lymphoma
     Dosage: 375 MG/M2 DAY 1 OF EACH CYCLE; DATE OF LAST ADMINISTRATION OF TRUXIMA PRIOR TO ONSET OF THE EVENT: 0
     Route: 042
     Dates: start: 20210813, end: 20211001
  2. TRUXIMA [Suspect]
     Active Substance: RITUXIMAB-ABBS
     Dosage: 375 MG/M2 DAY 1 OF EACH CYCLE; DATE OF LAST ADMINISTRATION OF TRUXIMA PRIOR TO ONSET OF THE EVENT: 0
     Route: 042
     Dates: start: 20210813, end: 20211001
  3. COPANLISIB [Suspect]
     Active Substance: COPANLISIB
     Indication: Marginal zone lymphoma
     Dosage: 60 MG ON DAYS 1,8, AND 15; DATE OF LAST ADMINISTRATION PRIOR TO ONSET OF THE EVENT: 01 OCT 2021
     Route: 042
     Dates: start: 20210813, end: 20211008
  4. PREDNISOLONE [Concomitant]
     Active Substance: PREDNISOLONE
     Indication: Rash
     Dosage: UNK, DAILY
     Route: 048
     Dates: start: 20210909, end: 20211024

REACTIONS (2)
  - Hyperglycaemia [Recovered/Resolved]
  - Off label use [Unknown]

NARRATIVE: CASE EVENT DATE: 20211008
